FAERS Safety Report 5207518-2 (Version None)
Quarter: 2007Q1

REPORT INFORMATION
  Report Type: 
  Country: None (occurrence: None)
  Receive Date: 20070112
  Receipt Date: 20070109
  Transmission Date: 20070707
  Serious: Yes (Disabling)
  Sender: FDA-Public Use
  Company Number: US-BOEHRINGER INGELHEIM PHARMACEUTICALS, INC.-2006-BP-14613BP

PATIENT
  Age: 63 Year
  Sex: Female
  Weight: 66.22 kg

DRUGS (5)
  1. SPIRIVA [Suspect]
     Dates: end: 20061201
  2. PULMICORT [Concomitant]
     Route: 055
     Dates: start: 20050401
  3. FORADIL [Concomitant]
     Dates: start: 20050401
  4. PREDNISONE TAB [Concomitant]
     Dates: start: 20050401
  5. EVISTA [Concomitant]
     Dates: start: 20050101

REACTIONS (3)
  - DERMATITIS [None]
  - LUPUS-LIKE SYNDROME [None]
  - RASH [None]
